FAERS Safety Report 25279410 (Version 2)
Quarter: 2025Q3

REPORT INFORMATION
  Report Type: Spontaneous
  Country: PK (occurrence: PK)
  Receive Date: 20250507
  Receipt Date: 20250707
  Transmission Date: 20251021
  Serious: Yes (Other)
  Sender: PFIZER
  Company Number: PK-PFIZER INC-PV202500048942

PATIENT
  Age: 65 Year
  Sex: Female

DRUGS (7)
  1. RUXIENCE [Suspect]
     Active Substance: RITUXIMAB-PVVR
     Indication: Rheumatoid arthritis
     Route: 042
  2. RUXIENCE [Suspect]
     Active Substance: RITUXIMAB-PVVR
     Route: 042
     Dates: start: 20250422
  3. PROTHIADEN [Concomitant]
     Active Substance: DOTHIEPIN HYDROCHLORIDE
  4. CALCIUM CARBONATE [Concomitant]
     Active Substance: CALCIUM CARBONATE
  5. HYDROXYCHLOROQUINE [Concomitant]
     Active Substance: HYDROXYCHLOROQUINE
  6. INDROP D [Concomitant]
     Route: 030
  7. AMORIN [AZATHIOPRINE] [Concomitant]

REACTIONS (5)
  - Optic neuropathy [Unknown]
  - Interstitial lung disease [Unknown]
  - Deafness neurosensory [Unknown]
  - Myositis [Unknown]
  - Off label use [Unknown]

NARRATIVE: CASE EVENT DATE: 20250418
